FAERS Safety Report 8558530-7 (Version None)
Quarter: 2012Q3

REPORT INFORMATION
  Report Type: 
  Country: None (occurrence: None)
  Receive Date: 20120801
  Receipt Date: 20120727
  Transmission Date: 20120928
  Serious: Yes (Hospitalization)
  Sender: FDA-Public Use
  Company Number: DE-ABBOTT-12P-062-0928028-00

PATIENT
  Sex: Male

DRUGS (4)
  1. HUMIRA [Suspect]
     Indication: CROHN'S DISEASE
     Route: 058
     Dates: start: 20081113, end: 20120701
  2. HUMIRA [Suspect]
     Route: 058
     Dates: start: 20120701
  3. CURCUMA [Concomitant]
     Indication: PRODUCT USED FOR UNKNOWN INDICATION
     Route: 048
  4. FERROUS SULFATE TAB [Concomitant]
     Indication: PRODUCT USED FOR UNKNOWN INDICATION
     Dosage: UNK.

REACTIONS (9)
  - HYPERTENSION [None]
  - ARRHYTHMIA [None]
  - STAPHYLOCOCCAL SEPSIS [None]
  - DEVICE RELATED INFECTION [None]
  - TACHYCARDIA [None]
  - CHILLS [None]
  - PYREXIA [None]
  - NEPHROLITHIASIS [None]
  - NASOPHARYNGITIS [None]
